FAERS Safety Report 10476134 (Version 2)
Quarter: 2014Q4

REPORT INFORMATION
  Report Type: Spontaneous
  Country: US (occurrence: None)
  Receive Date: 20140923
  Receipt Date: 20141028
  Transmission Date: 20150528
  Serious: Yes (Hospitalization)
  Sender: FDA-Public Use
  Company Number: 2014-US-011842

PATIENT
  Age: 42 Year
  Sex: Male

DRUGS (2)
  1. XYREM [Suspect]
     Active Substance: SODIUM OXYBATE
     Indication: CATAPLEXY
     Route: 048
     Dates: start: 200401, end: 2004
  2. XYREM [Suspect]
     Active Substance: SODIUM OXYBATE
     Indication: NARCOLEPSY
     Route: 048
     Dates: start: 200401, end: 2004

REACTIONS (6)
  - Gastrointestinal ulcer [None]
  - Chest discomfort [None]
  - Oesophagitis [None]
  - Oesophageal ulcer [None]
  - Gastric ulcer [None]
  - Non-cardiac chest pain [None]

NARRATIVE: CASE EVENT DATE: 201409
